FAERS Safety Report 15996090 (Version 1)
Quarter: 2019Q1

REPORT INFORMATION
  Report Type: Report from Study
  Country: US (occurrence: US)
  Receive Date: 20190222
  Receipt Date: 20190222
  Transmission Date: 20190418
  Serious: Yes (Hospitalization)
  Sender: FDA-Public Use
  Company Number: US-SA-2019SA046295

PATIENT
  Age: 19 Year
  Sex: Female

DRUGS (2)
  1. INSULIN GLARGINE [Suspect]
     Active Substance: INSULIN GLARGINE
     Indication: TYPE 1 DIABETES MELLITUS
     Dosage: 8 U, AT NIGHT
     Route: 058
  2. ADMELOG [Concomitant]
     Active Substance: INSULIN LISPRO

REACTIONS (5)
  - Urticaria [Recovered/Resolved]
  - Burning sensation [Recovered/Resolved]
  - Blood glucose increased [Recovered/Resolved]
  - Pruritus [Recovered/Resolved]
  - Hyperglycaemia [Recovered/Resolved]

NARRATIVE: CASE EVENT DATE: 2012
